FAERS Safety Report 12562338 (Version 3)
Quarter: 2016Q4

REPORT INFORMATION
  Report Type: Report from Study
  Country: US (occurrence: PR)
  Receive Date: 20160715
  Receipt Date: 20161103
  Transmission Date: 20170207
  Serious: Yes (Other)
  Sender: FDA-Public Use
  Company Number: US-MALLINCKRODT-T201602831

PATIENT
  Age: 63 Year
  Sex: Female

DRUGS (2)
  1. REPOSITORY CORTICOTROPIN INJECTION [Suspect]
     Active Substance: CORTICOTROPIN
     Indication: PROTEINURIA
     Dosage: 80 UNITS/1 ML TWICE WEEKLY (TUES + FRI OR SAT)
     Route: 058
     Dates: start: 20151110
  2. REPOSITORY CORTICOTROPIN INJECTION [Suspect]
     Active Substance: CORTICOTROPIN
     Indication: NEPHROTIC SYNDROME

REACTIONS (6)
  - Blood cholesterol increased [Recovering/Resolving]
  - Pneumonia [Recovering/Resolving]
  - Blood triglycerides abnormal [Recovering/Resolving]
  - Proteinuria [Recovering/Resolving]
  - Drug dose omission [Unknown]
  - Lipids abnormal [Unknown]

NARRATIVE: CASE EVENT DATE: 20160627
